FAERS Safety Report 15763916 (Version 1)
Quarter: 2018Q4

REPORT INFORMATION
  Report Type: Spontaneous
  Country: FR (occurrence: FR)
  Receive Date: 20181227
  Receipt Date: 20181227
  Transmission Date: 20190205
  Serious: Yes (Other)
  Sender: FDA-Public Use
  Company Number: FR-TEVA-2018-FR-991307

PATIENT
  Age: 53 Year
  Sex: Male
  Weight: 94 kg

DRUGS (3)
  1. ESOMEPRAZOLE MAGNESIUM. [Suspect]
     Active Substance: ESOMEPRAZOLE MAGNESIUM
     Indication: HIATUS HERNIA
     Dosage: 20 MILLIGRAM DAILY; IN EVENING
     Route: 048
     Dates: start: 1998
  2. ELIQUIS [Suspect]
     Active Substance: APIXABAN
     Indication: PHLEBITIS
     Dosage: 5 MILLIGRAM DAILY;
     Route: 048
     Dates: start: 20180502, end: 20180801
  3. ELIQUIS [Suspect]
     Active Substance: APIXABAN
     Dosage: 10 MILLIGRAM DAILY;
     Route: 048
     Dates: start: 20180130, end: 20180801

REACTIONS (2)
  - Fracture delayed union [Recovering/Resolving]
  - Complex regional pain syndrome [Recovering/Resolving]

NARRATIVE: CASE EVENT DATE: 20180401
